FAERS Safety Report 17169111 (Version 11)
Quarter: 2021Q3

REPORT INFORMATION
  Report Type: Report from Study
  Country: BR (occurrence: BR)
  Receive Date: 20191218
  Receipt Date: 20210809
  Transmission Date: 20211014
  Serious: Yes (Life-Threatening, Hospitalization)
  Sender: FDA-Public Use
  Company Number: BR-ROCHE-2493321

PATIENT
  Age: 47 Year
  Sex: Female
  Weight: 90.35 kg

DRUGS (60)
  1. OCRELIZUMAB. [Suspect]
     Active Substance: OCRELIZUMAB
     Dosage: OLE?WEEK 144
     Route: 042
     Dates: start: 20170822, end: 20170822
  2. OCRELIZUMAB. [Suspect]
     Active Substance: OCRELIZUMAB
     Dosage: OLE?WEEK 192
     Route: 042
     Dates: start: 20180810, end: 20180810
  3. PROMETAZINA [Concomitant]
     Dosage: 24/JAN/2013, 13/JUN/2013, 19/NOV/2013, 22/MAY/2014, 13/NOV/2014, 25/NOV/2014, 30/APR/2015, 20/OCT/20
  4. CHLORPROMAZINE. [Concomitant]
     Active Substance: CHLORPROMAZINE
     Dosage: 10 DROP
     Dates: start: 20191113, end: 20191113
  5. GLUCOSAMINE AND CHONDROITIN [Concomitant]
     Active Substance: CHONDROITIN SULFATE (BOVINE)\GLUCOSAMINE HYDROCHLORIDE
     Indication: PAIN
     Dosage: 1 UNIT
     Dates: start: 20160622
  6. OCRELIZUMAB. [Suspect]
     Active Substance: OCRELIZUMAB
     Dosage: OLE?WEEK 72
     Route: 042
     Dates: start: 20160405, end: 20160405
  7. OCRELIZUMAB. [Suspect]
     Active Substance: OCRELIZUMAB
     Dosage: WEEK 2
     Route: 042
     Dates: start: 20130124, end: 20130124
  8. PARACETAMOL [Concomitant]
     Active Substance: ACETAMINOPHEN
     Dates: start: 20140717, end: 20140820
  9. CHLORPROMAZINE. [Concomitant]
     Active Substance: CHLORPROMAZINE
     Dates: start: 20191201, end: 20191201
  10. MIRTAZAPINE. [Concomitant]
     Active Substance: MIRTAZAPINE
     Dates: start: 20191109, end: 20191111
  11. GABALON [Concomitant]
     Active Substance: BACLOFEN
     Dosage: 1 TABLET
     Dates: start: 20191110, end: 20191121
  12. OCRELIZUMAB. [Suspect]
     Active Substance: OCRELIZUMAB
     Dosage: OLE?WEEK 24
     Route: 042
     Dates: start: 20150430, end: 20150430
  13. OCRELIZUMAB. [Suspect]
     Active Substance: OCRELIZUMAB
     Dosage: OLE?WEEK 168
     Route: 042
     Dates: start: 20180206, end: 20180206
  14. ENOXAPARIN [Concomitant]
     Active Substance: ENOXAPARIN
     Dosage: PREVENTION OF DEEP VENOUS?THROMBOSIS
     Dates: start: 20191108, end: 20191121
  15. ONDANSETRON [Concomitant]
     Active Substance: ONDANSETRON
     Dosage: 1 AMPULE
     Dates: start: 20191108, end: 20191108
  16. CHLORPROMAZINE. [Concomitant]
     Active Substance: CHLORPROMAZINE
     Dates: start: 20191111, end: 20191112
  17. PEMBROLIZUMAB. [Concomitant]
     Active Substance: PEMBROLIZUMAB
     Dates: start: 20200118, end: 20200118
  18. QUETIAPINE. [Concomitant]
     Active Substance: QUETIAPINE
     Indication: PSYCHOMOTOR HYPERACTIVITY
     Dates: start: 20191208, end: 20191210
  19. NOVAMOXIN [Concomitant]
     Active Substance: AMOXICILLIN
     Indication: TOOTHACHE
     Dates: start: 20140805, end: 20140811
  20. KETOCONAZOLE. [Concomitant]
     Active Substance: KETOCONAZOLE
     Indication: SKIN INJURY
     Dates: start: 20200118, end: 20200119
  21. OCRELIZUMAB. [Suspect]
     Active Substance: OCRELIZUMAB
     Dosage: OLE?WEEK 2
     Route: 042
     Dates: start: 20141125, end: 20141125
  22. OCRELIZUMAB. [Suspect]
     Active Substance: OCRELIZUMAB
     Dosage: OLE?WEEK 120
     Route: 042
     Dates: start: 20170307, end: 20170307
  23. OCRELIZUMAB. [Suspect]
     Active Substance: OCRELIZUMAB
     Indication: RELAPSING-REMITTING MULTIPLE SCLEROSIS
     Dosage: BASELINE (WEEK 1)?BLINDED OCRELIZUMAB SPLIT DOSAGE ON DAYS 1 AND 15 FOR THE FIRST DOSE AND AS A SING
     Route: 042
     Dates: start: 20121220, end: 20121220
  24. OCRELIZUMAB. [Suspect]
     Active Substance: OCRELIZUMAB
     Dosage: WEEK 72
     Route: 042
     Dates: start: 20140522, end: 20140522
  25. PLACEBO [Suspect]
     Active Substance: UNSPECIFIED INGREDIENT
     Indication: RELAPSING-REMITTING MULTIPLE SCLEROSIS
     Route: 058
     Dates: start: 20121220, end: 20121220
  26. PARACETAMOL [Concomitant]
     Active Substance: ACETAMINOPHEN
     Indication: PAIN
     Dosage: 22/MAY/2014, 13/NOV/2014, 25/NOV/2014, 30/APR/2015, 20/OCT/2015, 05/APR/2016, 23/SEP/2016, 07/MAR/20
  27. CHLORPROMAZINE. [Concomitant]
     Active Substance: CHLORPROMAZINE
     Dates: start: 20191203, end: 20191203
  28. MIRTAZAPINE. [Concomitant]
     Active Substance: MIRTAZAPINE
     Dates: start: 20191201, end: 20191201
  29. NIVOLUMAB [Concomitant]
     Active Substance: NIVOLUMAB
     Dates: start: 20191110, end: 20191110
  30. VITAMIN C [Concomitant]
     Active Substance: ASCORBIC ACID
     Dosage: 1 TABLET
     Dates: start: 20191110, end: 20191121
  31. AMPICILLIN [Concomitant]
     Active Substance: AMPICILLIN
     Dates: start: 20191112, end: 20191117
  32. DRAMIN [Concomitant]
     Active Substance: DIMENHYDRINATE
     Dates: start: 20130206
  33. CLONAZEPAN [Concomitant]
     Active Substance: CLONAZEPAM
  34. CARBAMAZEPINE. [Concomitant]
     Active Substance: CARBAMAZEPINE
     Dates: start: 20190820, end: 20190922
  35. OCRELIZUMAB. [Suspect]
     Active Substance: OCRELIZUMAB
     Indication: RELAPSING-REMITTING MULTIPLE SCLEROSIS
     Dosage: OLE?WEEK 0?OCRELIZUMAB 600 MG INTRAVENOUS (IV) AS 300 MG INFUSIONS ON DAYS 1 AND 15 FOR THE FIRST DO
     Route: 042
     Dates: start: 20141113, end: 20141113
  36. OCRELIZUMAB. [Suspect]
     Active Substance: OCRELIZUMAB
     Dosage: OLE?WEEK 240
     Route: 042
     Dates: start: 20190731, end: 20190731
  37. METHYLPREDNISOLONE. [Concomitant]
     Active Substance: METHYLPREDNISOLONE
     Dosage: 20/DEC/2012, 24/JAN/2013, 13/JUN/2013, 19/NOV/2013, 22/MAY/2014, 13/NOV/2014, 25/NOV/2014, 30/APR/20
  38. ENOXAPARIN [Concomitant]
     Active Substance: ENOXAPARIN
     Dates: start: 20191202, end: 20191209
  39. OLANZAPINE. [Concomitant]
     Active Substance: OLANZAPINE
     Indication: PSYCHOMOTOR HYPERACTIVITY
     Dates: start: 20191108, end: 20191109
  40. CHLORPROMAZINE. [Concomitant]
     Active Substance: CHLORPROMAZINE
     Dates: start: 20191204, end: 20191210
  41. SYNTHROID [Concomitant]
     Active Substance: LEVOTHYROXINE SODIUM
     Indication: HYPOTHYROIDISM
     Dates: start: 201206
  42. OCRELIZUMAB. [Suspect]
     Active Substance: OCRELIZUMAB
     Dosage: OLE?WEEK 48
     Route: 042
     Dates: start: 20151020, end: 20151020
  43. GABALON [Concomitant]
     Active Substance: BACLOFEN
     Dates: start: 20191203, end: 20191203
  44. PEMBROLIZUMAB. [Concomitant]
     Active Substance: PEMBROLIZUMAB
     Route: 042
     Dates: start: 20191211, end: 20191211
  45. OCRELIZUMAB. [Suspect]
     Active Substance: OCRELIZUMAB
     Dosage: OLE?WEEK 216
     Route: 042
     Dates: start: 20190125, end: 20190125
  46. OCRELIZUMAB. [Suspect]
     Active Substance: OCRELIZUMAB
     Dosage: WEEK 48
     Route: 042
     Dates: start: 20131119, end: 20131119
  47. CHLORPROMAZINE. [Concomitant]
     Active Substance: CHLORPROMAZINE
     Dosage: 5 DROP
     Dates: start: 20191113, end: 20191113
  48. MIRTAZAPINE. [Concomitant]
     Active Substance: MIRTAZAPINE
     Dates: start: 20191114, end: 20191121
  49. MIRTAZAPINE. [Concomitant]
     Active Substance: MIRTAZAPINE
     Dates: start: 20191201
  50. TAZOCIN [Concomitant]
     Active Substance: PIPERACILLIN SODIUM\TAZOBACTAM SODIUM
     Indication: PNEUMONIA
     Dates: start: 20191201, end: 20191207
  51. CARBAMAZEPINE. [Concomitant]
     Active Substance: CARBAMAZEPINE
     Dates: start: 20190923, end: 20191104
  52. OCRELIZUMAB. [Suspect]
     Active Substance: OCRELIZUMAB
     Dosage: OLE?WEEK 96
     Route: 042
     Dates: start: 20160923, end: 20160923
  53. OCRELIZUMAB. [Suspect]
     Active Substance: OCRELIZUMAB
     Dosage: WEEK 24
     Route: 042
     Dates: start: 20130613, end: 20130613
  54. PLACEBO [Suspect]
     Active Substance: UNSPECIFIED INGREDIENT
     Route: 058
     Dates: start: 20141024, end: 20141110
  55. CHLORPROMAZINE. [Concomitant]
     Active Substance: CHLORPROMAZINE
     Dates: start: 20191109, end: 20191109
  56. MIRTAZAPINE. [Concomitant]
     Active Substance: MIRTAZAPINE
     Dates: start: 20191114, end: 20191121
  57. PEMBROLIZUMAB. [Concomitant]
     Active Substance: PEMBROLIZUMAB
     Dates: start: 20191111
  58. HIGROTON [Concomitant]
     Active Substance: CHLORTHALIDONE
     Indication: HYPERTENSION
     Dates: start: 20170110
  59. RANITIDINE. [Concomitant]
     Active Substance: RANITIDINE
     Indication: GASTROINTESTINAL DISORDER PROPHYLAXIS
     Dates: start: 20191202, end: 20191208
  60. NYSTATIN;ZINC OXIDE [Concomitant]
     Dosage: PRESSURE WOUND TREATMENT
     Dates: start: 20191202, end: 20191210

REACTIONS (2)
  - Pneumonia aspiration [Recovered/Resolved]
  - Dysphagia [Unknown]

NARRATIVE: CASE EVENT DATE: 20191105
